FAERS Safety Report 4814457-5 (Version None)
Quarter: 2005Q4

REPORT INFORMATION
  Report Type: 
  Country: None (occurrence: None)
  Receive Date: 20051028
  Receipt Date: 20050826
  Transmission Date: 20060501
  Serious: No
  Sender: FDA-Public Use
  Company Number: US-GLAXOSMITHKLINE-A0572416A

PATIENT
  Age: 6 Year
  Sex: Female

DRUGS (1)
  1. ADVAIR DISKUS 100/50 [Suspect]
     Indication: DRUG USE FOR UNKNOWN INDICATION
     Route: 055

REACTIONS (5)
  - HYPERSENSITIVITY [None]
  - ILL-DEFINED DISORDER [None]
  - NASAL CONGESTION [None]
  - RHINORRHOEA [None]
  - SNEEZING [None]
